FAERS Safety Report 8180089-7 (Version None)
Quarter: 2012Q1

REPORT INFORMATION
  Report Type: 
  Country: None (occurrence: None)
  Receive Date: 20120302
  Receipt Date: 20120302
  Transmission Date: 20120608
  Serious: Yes (Other)
  Sender: FDA-Public Use
  Company Number: None

PATIENT
  Age: 35 Year
  Sex: Female
  Weight: 68.946 kg

DRUGS (2)
  1. CETIRIZINE [Suspect]
     Indication: OEDEMA
     Dosage: 10MG
     Route: 048
     Dates: start: 20110315, end: 20120501
  2. CETIRIZINE [Suspect]
     Indication: URTICARIA CHRONIC
     Dosage: 10MG
     Route: 048
     Dates: start: 20110315, end: 20120501

REACTIONS (5)
  - PRURITUS [None]
  - RASH [None]
  - ANXIETY [None]
  - DRUG WITHDRAWAL SYNDROME [None]
  - BURNING SENSATION [None]
